FAERS Safety Report 22631250 (Version 1)
Quarter: 2023Q2

REPORT INFORMATION
  Report Type: Spontaneous
  Country: US (occurrence: US)
  Receive Date: 20230623
  Receipt Date: 20230623
  Transmission Date: 20230721
  Serious: Yes (Life-Threatening, Hospitalization)
  Sender: FDA-Public Use
  Company Number: US-STRIDES ARCOLAB LIMITED-2023SP009621

PATIENT
  Age: 52 Year
  Sex: Female

DRUGS (10)
  1. AMANTADINE [Suspect]
     Active Substance: AMANTADINE
     Indication: Catatonia
     Dosage: 100 MILLIGRAM/ DAY
     Route: 065
  2. AMANTADINE [Suspect]
     Active Substance: AMANTADINE
     Dosage: UNK (RAPID REDUCTION DOSE PRIOR TO THE DISCONTINUATION)
     Route: 065
  3. AMANTADINE [Suspect]
     Active Substance: AMANTADINE
     Dosage: UNK
     Route: 065
  4. PREDNISOLONE [Suspect]
     Active Substance: PREDNISOLONE
     Indication: Cutaneous lupus erythematosus
     Dosage: 5 MILLIGRAM, TID
     Route: 065
  5. LORAZEPAM [Suspect]
     Active Substance: LORAZEPAM
     Indication: Catatonia
     Dosage: UNK, ATIVAN
     Route: 065
  6. LORAZEPAM [Suspect]
     Active Substance: LORAZEPAM
     Dosage: 9 MILLIGRAM/DAY (GRADUALLY INCREASED DOSE OVER THE PERIOD OF 4 WEEKS), ATIVAN
     Route: 065
  7. LORAZEPAM [Suspect]
     Active Substance: LORAZEPAM
     Dosage: UNK, RE-INITIATED
     Route: 065
  8. HYDROXYCHLOROQUINE [Concomitant]
     Active Substance: HYDROXYCHLOROQUINE
     Indication: Rheumatoid arthritis
     Dosage: 200 MILLIGRAM/DAY
     Route: 065
  9. VENLAFAXINE [Concomitant]
     Active Substance: VENLAFAXINE HYDROCHLORIDE
     Indication: Schizoaffective disorder bipolar type
     Dosage: 75 MILLIGRAM/ DAY
     Route: 065
  10. LAMOTRIGINE [Concomitant]
     Active Substance: LAMOTRIGINE
     Indication: Seizure
     Dosage: 100 MILLIGRAM, AT BED TIME (RECEIVED AT NIGHT)
     Route: 065

REACTIONS (6)
  - Aspiration [Unknown]
  - Neuroleptic malignant syndrome [Recovered/Resolved]
  - Withdrawal syndrome [Recovered/Resolved]
  - Acute respiratory failure [Unknown]
  - Pneumonia staphylococcal [Recovered/Resolved]
  - Off label use [Unknown]
